FAERS Safety Report 4952871-8 (Version None)
Quarter: 2006Q1

REPORT INFORMATION
  Report Type: 
  Country: None (occurrence: None)
  Receive Date: 20060324
  Receipt Date: 20060314
  Transmission Date: 20060701
  Serious: Yes (Hospitalization)
  Sender: FDA-Public Use
  Company Number: IT-JNJFOC-20060301047

PATIENT
  Sex: Female

DRUGS (1)
  1. CONTRAMAL [Suspect]
     Indication: DRUG USE FOR UNKNOWN INDICATION
     Route: 048

REACTIONS (4)
  - ACCIDENTAL OVERDOSE [None]
  - ASTHENIA [None]
  - DIZZINESS [None]
  - PALLOR [None]
